FAERS Safety Report 7265162-X (Version None)
Quarter: 2011Q1

REPORT INFORMATION
  Report Type: 
  Country: None (occurrence: None)
  Receive Date: 20110131
  Receipt Date: 20110120
  Transmission Date: 20110831
  Serious: Yes (Hospitalization)
  Sender: FDA-Public Use
  Company Number: BR-MEDIMMUNE-MEDI-0012339

PATIENT
  Sex: Male
  Weight: 7.2 kg

DRUGS (1)
  1. SYNAGIS [Suspect]
     Route: 030
     Dates: start: 20100719, end: 20100817

REACTIONS (5)
  - LUNG DISORDER [None]
  - INFLUENZA [None]
  - PNEUMONIA [None]
  - INCREASED BRONCHIAL SECRETION [None]
  - WHEEZING [None]
